FAERS Safety Report 7378077-3 (Version None)
Quarter: 2011Q1

REPORT INFORMATION
  Report Type: 
  Country: None (occurrence: None)
  Receive Date: 20110328
  Receipt Date: 20101210
  Transmission Date: 20110831
  Serious: Yes (Hospitalization, Other)
  Sender: FDA-Public Use
  Company Number: US-BAYER-2010-002222

PATIENT
  Sex: Female

DRUGS (2)
  1. HYDROCODONE BITARTRATE [Concomitant]
  2. BETASERON [Suspect]
     Indication: MULTIPLE SCLEROSIS
     Dosage: 8 MIU, QOD
     Dates: start: 20060215

REACTIONS (3)
  - KNEE ARTHROPLASTY [None]
  - PAIN IN EXTREMITY [None]
  - ARTHRALGIA [None]
